FAERS Safety Report 7777449-2 (Version None)
Quarter: 2011Q3

REPORT INFORMATION
  Report Type: 
  Country: None (occurrence: None)
  Receive Date: 20110926
  Receipt Date: 20110916
  Transmission Date: 20111222
  Serious: Yes (Hospitalization)
  Sender: FDA-Public Use
  Company Number: JP-ASTRAZENECA-2011SE52810

PATIENT
  Age: 70 Year
  Sex: Male
  Weight: 51 kg

DRUGS (20)
  1. ATENEN [Concomitant]
     Indication: SPINAL OSTEOARTHRITIS
     Dosage: DOSE UNKNOWN
     Route: 048
     Dates: start: 20101220, end: 20110226
  2. ETODOLAC [Concomitant]
     Indication: SPINAL OSTEOARTHRITIS
     Dosage: DOSE UNKNOWN
     Route: 048
     Dates: start: 20101220, end: 20110226
  3. MUCOSTA [Concomitant]
     Indication: GASTRITIS
     Dosage: DOSE UNKNOWN
     Route: 048
     Dates: start: 20110308, end: 20110310
  4. ALBUTEROL SULFATE [Concomitant]
     Indication: CHRONIC OBSTRUCTIVE PULMONARY DISEASE
     Route: 055
     Dates: start: 20060111
  5. SPIRIVA [Concomitant]
     Indication: CHRONIC OBSTRUCTIVE PULMONARY DISEASE
     Route: 055
  6. PRIMPERAN TAB [Concomitant]
     Indication: DIZZINESS
     Dosage: DOSE UNKNOWN
     Route: 048
     Dates: start: 20100921, end: 20100921
  7. CEROCRAL [Concomitant]
     Indication: DIZZINESS
     Dosage: DOSE UNKNOWN
     Route: 048
     Dates: start: 20100921, end: 20100921
  8. LINOLOSAL [Concomitant]
     Indication: SPINAL OSTEOARTHRITIS
     Route: 065
     Dates: start: 20101220, end: 20101220
  9. COLICOOL [Concomitant]
     Indication: SPINAL OSTEOARTHRITIS
     Dosage: DOSE UNKNOWN
     Route: 048
     Dates: start: 20101220, end: 20110226
  10. LOXONIN [Concomitant]
     Indication: SPINAL OSTEOARTHRITIS
     Dosage: DOSE UNKNOWN
     Route: 048
     Dates: start: 20110315
  11. HOKUNALIN [Concomitant]
     Indication: CHRONIC OBSTRUCTIVE PULMONARY DISEASE
     Dosage: DOSE UNKNOWN
     Route: 003
     Dates: end: 20100914
  12. ROCAIN [Concomitant]
     Indication: SPINAL OSTEOARTHRITIS
     Dosage: AS REQUIRED
     Route: 065
     Dates: start: 20101220, end: 20101228
  13. NEUROTROPIN [Concomitant]
     Indication: SPINAL OSTEOARTHRITIS
     Dosage: AS REQUIRED
     Route: 065
     Dates: start: 20101222, end: 20110111
  14. FLUTICASONE PROPIONATE [Concomitant]
     Indication: CHRONIC OBSTRUCTIVE PULMONARY DISEASE
     Route: 055
     Dates: end: 20100914
  15. COMESGEN [Concomitant]
     Indication: SPINAL OSTEOARTHRITIS
     Dosage: DOSE UNKNOWN
     Route: 048
     Dates: start: 20101220, end: 20110226
  16. ANTIPYRETICS, ANALGESICS AND ANTI-INFLAMMATORY AGENTS [Concomitant]
     Indication: NASOPHARYNGITIS
     Dosage: AS REQUIRED
     Route: 048
     Dates: start: 20110411, end: 20110414
  17. SYMBICORT [Suspect]
     Indication: CHRONIC OBSTRUCTIVE PULMONARY DISEASE
     Dosage: 160/4.5 X2/DOSE
     Route: 055
     Dates: start: 20100914, end: 20110908
  18. LINOLOSAL [Concomitant]
     Route: 065
     Dates: start: 20101228, end: 20101228
  19. NORNICICAMIN [Concomitant]
     Indication: SPINAL OSTEOARTHRITIS
     Dosage: AS REQUIRED
     Route: 042
     Dates: start: 20101222, end: 20110111
  20. LANSOPRAZOLE [Concomitant]
     Indication: GASTRITIS
     Dosage: DOSE UNKNOWN
     Route: 048
     Dates: start: 20110310, end: 20110606

REACTIONS (1)
  - CHRONIC OBSTRUCTIVE PULMONARY DISEASE [None]
